FAERS Safety Report 6589812-6 (Version None)
Quarter: 2010Q1

REPORT INFORMATION
  Report Type: 
  Country: None (occurrence: None)
  Receive Date: 20100219
  Receipt Date: 20100202
  Transmission Date: 20100710
  Serious: No
  Sender: FDA-Public Use
  Company Number: US-JNJFOC-20091200143

PATIENT
  Sex: Male
  Weight: 63.5 kg

DRUGS (1)
  1. DURAGESIC-100 [Suspect]
     Indication: BACK PAIN
     Dosage: 3 100 UG/HR PATCHES
     Route: 062

REACTIONS (4)
  - ADVERSE EVENT [None]
  - INADEQUATE ANALGESIA [None]
  - INSOMNIA [None]
  - WRONG TECHNIQUE IN DRUG USAGE PROCESS [None]
